FAERS Safety Report 14300154 (Version 1)
Quarter: 2017Q4

REPORT INFORMATION
  Report Type: Spontaneous
  Country: FR (occurrence: FR)
  Receive Date: 20171219
  Receipt Date: 20171219
  Transmission Date: 20180321
  Serious: Yes (Other)
  Sender: FDA-Public Use
  Company Number: FR-MERCK KGAA-2037364

PATIENT
  Sex: Female

DRUGS (1)
  1. NOVOTHYROX [Suspect]
     Active Substance: LEVOTHYROXINE SODIUM
     Indication: PRODUCT USED FOR UNKNOWN INDICATION
     Dates: end: 2017

REACTIONS (13)
  - Loss of personal independence in daily activities [None]
  - Fatigue [Recovered/Resolved]
  - Gastrointestinal disorder [None]
  - Alopecia [None]
  - Libido decreased [None]
  - Migraine [Recovered/Resolved]
  - Affect lability [None]
  - Nausea [None]
  - Vertigo [None]
  - Irritability [None]
  - Depressed mood [None]
  - Pain [None]
  - Visual impairment [None]
